FAERS Safety Report 8143206-0 (Version None)
Quarter: 2012Q1

REPORT INFORMATION
  Report Type: 
  Country: None (occurrence: None)
  Receive Date: 20120217
  Receipt Date: 20120214
  Transmission Date: 20120608
  Serious: No
  Sender: FDA-Public Use
  Company Number: US-PFIZER INC-2012040009

PATIENT
  Sex: Male
  Weight: 79.365 kg

DRUGS (1)
  1. NICOTROL [Suspect]
     Indication: SMOKING CESSATION THERAPY
     Dosage: UNK, 4X/DAY
     Route: 055
     Dates: start: 20120212, end: 20120214

REACTIONS (3)
  - ABDOMINAL DISCOMFORT [None]
  - INHALATION THERAPY [None]
  - NAUSEA [None]
